FAERS Safety Report 8428563-X (Version None)
Quarter: 2012Q2

REPORT INFORMATION
  Report Type: 
  Country: None (occurrence: None)
  Receive Date: 20120605
  Receipt Date: 20120605
  Transmission Date: 20120825
  Serious: Yes (Other)
  Sender: FDA-Public Use
  Company Number: None

PATIENT
  Sex: Female
  Weight: 49.8957 kg

DRUGS (1)
  1. ORACEA [Suspect]
     Dosage: 40 MG 1 PER DAY PO
     Route: 048

REACTIONS (3)
  - MEDICATION ERROR [None]
  - PRODUCT PACKAGING ISSUE [None]
  - NO ADVERSE EVENT [None]
